FAERS Safety Report 7551473-7 (Version None)
Quarter: 2011Q2

REPORT INFORMATION
  Report Type: 
  Country: None (occurrence: None)
  Receive Date: 20110616
  Receipt Date: 20110603
  Transmission Date: 20111010
  Serious: Yes (Other)
  Sender: FDA-Public Use
  Company Number: PHHY2010BR84999

PATIENT
  Age: 45 Year
  Sex: Female
  Weight: 82 kg

DRUGS (6)
  1. OMEPRAZOLE [Concomitant]
     Dosage: 60 MG, QD
     Route: 048
  2. SANDOSTATIN LAR [Suspect]
     Indication: NEUROENDOCRINE TUMOUR
     Dosage: 20 MG, QMO
     Route: 030
     Dates: start: 20040101
  3. EUTIROX [Concomitant]
     Indication: HYPOTHYROIDISM
     Dosage: 350 MG, UNK
     Route: 048
  4. VITAMIN B-12 [Concomitant]
     Dosage: 1 DF, EVERY 15 DAYS
     Route: 030
  5. MOTILIUM [Concomitant]
     Indication: HYPOTHYROIDISM
     Dosage: 10 MG, 1 HOUR BEFORE THE MEALS
     Route: 048
     Dates: start: 20040101
  6. SANDOSTATIN LAR [Suspect]
     Dosage: 30 MG, QMO
     Route: 030
     Dates: start: 20080101

REACTIONS (5)
  - PAIN IN EXTREMITY [None]
  - GASTROINTESTINAL HAEMORRHAGE [None]
  - DISEASE RECURRENCE [None]
  - DIARRHOEA [None]
  - HAEMATOCHEZIA [None]
